FAERS Safety Report 19532759 (Version 1)
Quarter: 2021Q3

REPORT INFORMATION
  Report Type: Spontaneous
  Country: US (occurrence: US)
  Receive Date: 20210713
  Receipt Date: 20210713
  Transmission Date: 20211014
  Serious: Yes (Death, Hospitalization, Other)
  Sender: FDA-Public Use
  Company Number: US-AUROBINDO-AUR-APL-2021-028125

PATIENT
  Age: 78 Year
  Sex: Female

DRUGS (2)
  1. TENOFOVIR DISOPROXIL FUMARATE. [Suspect]
     Active Substance: TENOFOVIR DISOPROXIL FUMARATE
     Indication: CHRONIC HEPATITIS B
     Dosage: UNK
     Route: 065
  2. CIPROFLOXACIN. [Concomitant]
     Active Substance: CIPROFLOXACIN
     Indication: PRODUCT USED FOR UNKNOWN INDICATION
     Dosage: UNK

REACTIONS (20)
  - Cystitis [Unknown]
  - Mental status changes [Unknown]
  - Pancytopenia [Fatal]
  - Oedema peripheral [Fatal]
  - Malaise [Fatal]
  - Renal tubular acidosis [Fatal]
  - Hypothermia [Fatal]
  - Glycosuria [Fatal]
  - Escherichia infection [Unknown]
  - Proteinuria [Fatal]
  - Encephalopathy [Fatal]
  - Hyperchloraemia [Fatal]
  - Urine abnormality [Unknown]
  - Sinus arrest [Fatal]
  - Electrolyte imbalance [Fatal]
  - Multiple organ dysfunction syndrome [Fatal]
  - Fanconi syndrome [Fatal]
  - Nausea [Fatal]
  - Vomiting [Fatal]
  - Metabolic acidosis [Fatal]
